FAERS Safety Report 8949215 (Version 1)
Quarter: 2012Q4

REPORT INFORMATION
  Report Type: 
  Country: DK (occurrence: NZ)
  Receive Date: 20121206
  Receipt Date: 20121206
  Transmission Date: 20130627
  Serious: Yes (Life-Threatening)
  Sender: FDA-Public Use
  Company Number: NZ-FRI-1000040843

PATIENT
  Age: 46 Year
  Sex: Female

DRUGS (3)
  1. CITALOPRAM [Suspect]
     Dosage: 10 mg
  2. OMEPRAZOLE [Interacting]
     Dosage: 20 mg
  3. OLANZAPINE [Concomitant]

REACTIONS (3)
  - Hyponatraemia [Unknown]
  - Convulsion [Unknown]
  - Drug interaction [Unknown]
